FAERS Safety Report 22045909 (Version 1)
Quarter: 2023Q1

REPORT INFORMATION
  Report Type: Spontaneous
  Country: CA (occurrence: CA)
  Receive Date: 20230228
  Receipt Date: 20230228
  Transmission Date: 20230418
  Serious: Yes (Hospitalization, Other)
  Sender: FDA-Public Use
  Company Number: CA-PFIZER INC-202300081223

PATIENT
  Age: 68 Year
  Sex: Male
  Weight: 72 kg

DRUGS (20)
  1. CYTARABINE [Suspect]
     Active Substance: CYTARABINE
     Dosage: 40 MG
     Route: 037
  2. CYTARABINE [Suspect]
     Active Substance: CYTARABINE
     Dosage: 3540 MG
  3. HYDROCORTISONE SODIUM SUCCINATE [Suspect]
     Active Substance: HYDROCORTISONE SODIUM SUCCINATE
     Dosage: 100 MG
     Route: 037
  4. METHOTREXATE SODIUM [Suspect]
     Active Substance: METHOTREXATE SODIUM
     Dosage: 6200 MG
     Route: 042
  5. METHOTREXATE SODIUM [Suspect]
     Active Substance: METHOTREXATE SODIUM
     Dosage: 15 MG
     Route: 037
  6. RITUXIMAB [Suspect]
     Active Substance: RITUXIMAB
     Indication: B-cell lymphoma
     Dosage: 660 MG
  7. THIOTEPA [Suspect]
     Active Substance: THIOTEPA
     Dosage: 53 MG
  8. ACETAMINOPHEN [Concomitant]
     Active Substance: ACETAMINOPHEN
  9. DEXAMETHASONE [Concomitant]
     Active Substance: DEXAMETHASONE
  10. DIPHENHYDRAMINE [Concomitant]
     Active Substance: DIPHENHYDRAMINE
  11. FILGRASTIM [Concomitant]
     Active Substance: FILGRASTIM
  12. LEUCOVORIN CALCIUM [Concomitant]
     Active Substance: LEUCOVORIN CALCIUM
  13. FUROSEMIDE [Concomitant]
     Active Substance: FUROSEMIDE
  14. GLYCOPYRROLATE [Concomitant]
     Active Substance: GLYCOPYRROLATE
  15. LEVOFLOXACIN [Concomitant]
     Active Substance: LEVOFLOXACIN
  16. LORAZEPAM [Concomitant]
     Active Substance: LORAZEPAM
     Route: 065
  17. METOCLOPRAMIDE [Concomitant]
     Active Substance: METOCLOPRAMIDE
  18. ONDANSETRON [Concomitant]
     Active Substance: ONDANSETRON
  19. PROCHLORPERAZINE [Concomitant]
     Active Substance: PROCHLORPERAZINE
  20. SULFAMETHOXAZOLE\TRIMETHOPRIM [Concomitant]
     Active Substance: SULFAMETHOXAZOLE\TRIMETHOPRIM

REACTIONS (3)
  - Atypical pneumonia [Recovered/Resolved]
  - Febrile neutropenia [Recovered/Resolved]
  - Systemic candida [Recovered/Resolved]
